FAERS Safety Report 6888220-8 (Version None)
Quarter: 2010Q3

REPORT INFORMATION
  Report Type: 
  Country: None (occurrence: None)
  Receive Date: 20100730
  Receipt Date: 20100726
  Transmission Date: 20110219
  Serious: Yes (Other)
  Sender: FDA-Public Use
  Company Number: US-JNJFOC-20100500372

PATIENT
  Sex: Male
  Weight: 14.97 kg

DRUGS (3)
  1. CONCENTRATED MOTRIN INFANTS DROPS [Suspect]
     Route: 048
  2. CONCENTRATED MOTRIN INFANTS DROPS [Suspect]
     Indication: PYREXIA
     Dosage: AS RECOMMENDED
     Route: 048
  3. ACETAMINOPHEN [Concomitant]
     Indication: PYREXIA
     Dosage: AS RECOMMENDED
     Route: 065

REACTIONS (2)
  - AUTISM [None]
  - PRODUCT CONTAMINATION PHYSICAL [None]
